FAERS Safety Report 9670791 (Version 2)
Quarter: 2014Q1

REPORT INFORMATION
  Report Type: Spontaneous
  Country: US (occurrence: US)
  Receive Date: 20131106
  Receipt Date: 20140103
  Transmission Date: 20141002
  Serious: Yes (Hospitalization)
  Sender: FDA-Public Use
  Company Number: US-BAYER-2013-134387

PATIENT
  Age: 33 Year
  Sex: Female

DRUGS (10)
  1. YASMIN [Suspect]
     Dosage: UNK
     Dates: start: 200608, end: 200610
  2. YAZ [Suspect]
  3. PERCOCET [Concomitant]
     Dosage: UNK
     Dates: start: 20061008
  4. VICODIN [Concomitant]
     Dosage: UNK
     Dates: start: 20061020
  5. XANAX [Concomitant]
     Dosage: UNK
     Dates: start: 20061020
  6. LEVAQUIN [Concomitant]
  7. FLEXERIL [Concomitant]
  8. OXYCODONE [Concomitant]
  9. PHENERGAN [Concomitant]
  10. ATIVAN [Concomitant]

REACTIONS (8)
  - Pulmonary embolism [Recovered/Resolved]
  - Deep vein thrombosis [Recovering/Resolving]
  - Injury [Recovering/Resolving]
  - Pain [Recovering/Resolving]
  - Emotional distress [None]
  - General physical health deterioration [Recovering/Resolving]
  - Anxiety [None]
  - Pain [None]
